FAERS Safety Report 7402365-5 (Version None)
Quarter: 2011Q2

REPORT INFORMATION
  Report Type: 
  Country: None (occurrence: None)
  Receive Date: 20110408
  Receipt Date: 20110404
  Transmission Date: 20111010
  Serious: Yes (Other)
  Sender: FDA-Public Use
  Company Number: JP-BRISTOL-MYERS SQUIBB COMPANY-15652944

PATIENT

DRUGS (1)
  1. CISPLATIN [Suspect]

REACTIONS (1)
  - GASTROINTESTINAL PERFORATION [None]
